FAERS Safety Report 15622325 (Version 2)
Quarter: 2019Q1

REPORT INFORMATION
  Report Type: Spontaneous
  Country: JP (occurrence: JP)
  Receive Date: 20181115
  Receipt Date: 20190201
  Transmission Date: 20190417
  Serious: Yes (Death, Hospitalization, Other)
  Sender: FDA-Public Use
  Company Number: JP-009507513-1802JPN002256J

PATIENT
  Age: 77 Year
  Sex: Female
  Weight: 44 kg

DRUGS (9)
  1. OXYCODONE [Concomitant]
     Active Substance: OXYCODONE
     Indication: CANCER PAIN
     Dosage: UNK MILLIGRAM
     Route: 048
     Dates: start: 20171205, end: 20171209
  2. OXINORM [Concomitant]
     Indication: CANCER PAIN
     Dosage: 2.5 MILLIGRAM, PRN
     Route: 048
     Dates: start: 20171205, end: 20171210
  3. OXYCODONE [Concomitant]
     Active Substance: OXYCODONE
     Dosage: UNK MILLIGRAM
     Route: 048
     Dates: start: 20171211, end: 20171212
  4. KEYTRUDA [Suspect]
     Active Substance: PEMBROLIZUMAB
     Indication: LUNG ADENOCARCINOMA
     Dosage: 200 MG, UNK
     Route: 041
     Dates: start: 20171129, end: 20171129
  5. CEFCAPENE PIVOXIL HYDROCHLORIDE HYDRATE [Concomitant]
     Active Substance: CEFCAPENE PIVOXIL HYDROCHLORIDE HYDRATE
     Indication: PROPHYLAXIS
     Dosage: 100 MILLIGRAM, TID
     Route: 048
     Dates: start: 20171206, end: 20171209
  6. MAGMITT [Concomitant]
     Active Substance: MAGNESIUM OXIDE
     Indication: PROPHYLAXIS
     Dosage: 330 MILLIGRAM, TID
     Route: 048
     Dates: start: 20171205, end: 20171214
  7. NOVAMIN [Concomitant]
     Indication: PROPHYLAXIS
     Dosage: 5 MILLIGRAM, TID
     Route: 048
     Dates: start: 20171205, end: 20171214
  8. OXINORM [Concomitant]
     Dosage: 5 MILLIGRAM, PRN
     Route: 048
     Dates: start: 20171210, end: 20171212
  9. OXYCODONE [Concomitant]
     Active Substance: OXYCODONE
     Dosage: 15 UNK
     Route: 048
     Dates: start: 20171210, end: 20171210

REACTIONS (5)
  - Constipation [Recovered/Resolved]
  - Interstitial lung disease [Recovering/Resolving]
  - Delirium [Recovered/Resolved]
  - Coating in mouth [Recovering/Resolving]
  - Hepatic rupture [Fatal]

NARRATIVE: CASE EVENT DATE: 20171207
